FAERS Safety Report 8477313-X (Version None)
Quarter: 2012Q2

REPORT INFORMATION
  Report Type: 
  Country: None (occurrence: None)
  Receive Date: 20120622
  Receipt Date: 20120612
  Transmission Date: 20120825
  Serious: Yes (Other)
  Sender: FDA-Public Use
  Company Number: 2012SP023468

PATIENT
  Age: 16 Year
  Sex: Female

DRUGS (1)
  1. IMPLANON [Suspect]
     Indication: PRODUCT USED FOR UNKNOWN INDICATION
     Dosage: 68  MG, SBDE
     Route: 059
     Dates: start: 20120110, end: 20120501

REACTIONS (3)
  - RETINAL VEIN THROMBOSIS [None]
  - RETINAL ARTERY THROMBOSIS [None]
  - BLINDNESS [None]
